FAERS Safety Report 25995590 (Version 2)
Quarter: 2025Q4

REPORT INFORMATION
  Report Type: Report from Study
  Country: RU (occurrence: RU)
  Receive Date: 20251104
  Receipt Date: 20251112
  Transmission Date: 20260118
  Serious: Yes (Death, Other)
  Sender: ROCHE
  Company Number: RU-ROCHE-10000424153

PATIENT

DRUGS (2)
  1. GLOFITAMAB [Suspect]
     Active Substance: GLOFITAMAB
     Indication: Product used for unknown indication
     Route: 065
  2. GLOFITAMAB [Suspect]
     Active Substance: GLOFITAMAB
     Route: 065

REACTIONS (3)
  - COVID-19 [Unknown]
  - Viral infection [Unknown]
  - Death [Fatal]
